FAERS Safety Report 21732695 (Version 1)
Quarter: 2022Q4

REPORT INFORMATION
  Report Type: Spontaneous
  Country: US (occurrence: US)
  Receive Date: 20221215
  Receipt Date: 20221215
  Transmission Date: 20230112
  Serious: No
  Sender: FDA-Public Use
  Company Number: US-002147023-NVSC2022US289627

PATIENT
  Sex: Male
  Weight: 87.09 kg

DRUGS (3)
  1. LEQVIO [Suspect]
     Active Substance: INCLISIRAN SODIUM
     Indication: Type IIa hyperlipidaemia
     Dosage: 284 MG
     Route: 058
     Dates: start: 20220815
  2. LEQVIO [Suspect]
     Active Substance: INCLISIRAN SODIUM
     Dosage: UNK, 2ND DOSE ADMINISTERED, FOLLOW UP 3 MONTH DOSE
     Route: 058
     Dates: start: 20221115
  3. ATORVASTATIN [Concomitant]
     Active Substance: ATORVASTATIN
     Indication: Product used for unknown indication
     Dosage: 10 MG, QD
     Route: 065

REACTIONS (2)
  - Low density lipoprotein increased [Not Recovered/Not Resolved]
  - Drug effect less than expected [Not Recovered/Not Resolved]
